FAERS Safety Report 9010209 (Version 1)
Quarter: 2013Q1

REPORT INFORMATION
  Report Type: Spontaneous
  Country: US (occurrence: US)
  Receive Date: 20130110
  Receipt Date: 20130110
  Transmission Date: 20140127
  Serious: Yes (Other)
  Sender: FDA-Public Use
  Company Number: US-009507513-0909USA03202

PATIENT
  Age: 36 Month
  Sex: Male
  Weight: 19.96 kg

DRUGS (2)
  1. SINGULAIR [Suspect]
     Indication: MULTIPLE ALLERGIES
     Dosage: 60 1 TAB
     Route: 048
     Dates: start: 20080828, end: 20081211
  2. SINGULAIR [Suspect]
     Dosage: 60 1 TAB
     Route: 048
     Dates: start: 20090111

REACTIONS (4)
  - Self-injurious ideation [Recovered/Resolved]
  - Aggression [Recovered/Resolved]
  - Anger [Recovered/Resolved]
  - Anxiety [Recovered/Resolved]
